FAERS Safety Report 11427678 (Version 1)
Quarter: 2015Q3

REPORT INFORMATION
  Report Type: Spontaneous
  Country: US (occurrence: None)
  Receive Date: 20150827
  Receipt Date: 20150827
  Transmission Date: 20151125
  Serious: Yes (Life-Threatening, Hospitalization, Disabling)
  Sender: FDA-Public Use
  Company Number: None

PATIENT
  Age: 61 Year
  Sex: Male
  Weight: 80.4 kg

DRUGS (15)
  1. ENOXAPARIN [Suspect]
     Active Substance: ENOXAPARIN
     Indication: CEREBROVASCULAR ACCIDENT PROPHYLAXIS
     Route: 058
     Dates: start: 20140401, end: 20150802
  2. APAP [Concomitant]
     Active Substance: ACETAMINOPHEN
  3. ENOXAPARIN [Concomitant]
     Active Substance: ENOXAPARIN
  4. HYDROCORTISONE CREAM [Concomitant]
     Active Substance: HYDROCORTISONE
  5. ABIRATERONE [Concomitant]
     Active Substance: ABIRATERONE
  6. FLUTICASONE [Concomitant]
     Active Substance: FLUTICASONE\FLUTICASONE PROPIONATE
  7. OMEPRAZOLE. [Concomitant]
     Active Substance: OMEPRAZOLE
  8. BENZTROPINE [Concomitant]
     Active Substance: BENZTROPINE
  9. BUPRIOPION [Concomitant]
  10. MULTIVITAMIN [Concomitant]
     Active Substance: VITAMINS
  11. PREDNISONE. [Concomitant]
     Active Substance: PREDNISONE
  12. RISPERIDONE. [Concomitant]
     Active Substance: RISPERIDONE
  13. CHOLECALCIFEROL [Concomitant]
     Active Substance: CHOLECALCIFEROL
  14. DOCUSATE [Concomitant]
     Active Substance: DOCUSATE
  15. CODEINE [Concomitant]
     Active Substance: CODEINE

REACTIONS (4)
  - Transient ischaemic attack [None]
  - Cerebrovascular accident [None]
  - Dizziness [None]
  - Haemorrhage intracranial [None]

NARRATIVE: CASE EVENT DATE: 20150802
